FAERS Safety Report 6282257-8 (Version None)
Quarter: 2009Q3

REPORT INFORMATION
  Report Type: 
  Country: None (occurrence: None)
  Receive Date: 20090724
  Receipt Date: 20090722
  Transmission Date: 20100115
  Serious: Yes (Death, Other)
  Sender: FDA-Public Use
  Company Number: US-TEVA-203189USA

PATIENT
  Sex: Male

DRUGS (2)
  1. PROPOFOL [Suspect]
     Route: 042
     Dates: start: 20090717, end: 20090717
  2. CEFAZOLIN SODIUM [Suspect]
     Route: 042
     Dates: start: 20090717, end: 20090717

REACTIONS (3)
  - CARDIAC ARREST [None]
  - CONVULSION [None]
  - RESPIRATORY ARREST [None]
